FAERS Safety Report 24282177 (Version 1)
Quarter: 2024Q3

REPORT INFORMATION
  Report Type: Spontaneous
  Country: US (occurrence: None)
  Receive Date: 20240903
  Receipt Date: 20240903
  Transmission Date: 20241016
  Serious: No
  Sender: Public
  Company Number: None

PATIENT
  Age: 65 Year
  Sex: Male
  Weight: 31.41 kg

DRUGS (1)
  1. CARVYKTI [Suspect]
     Active Substance: CILTACABTAGENE AUTOLEUCEL
     Indication: Plasma cell myeloma
     Dosage: OTHER FREQUENCY : ONCE;?
     Route: 042
     Dates: start: 20240710, end: 20240710

REACTIONS (10)
  - Cytokine release syndrome [None]
  - Cystitis [None]
  - Dysuria [None]
  - Emphysema [None]
  - Hallucination, visual [None]
  - Immune effector cell-associated neurotoxicity syndrome [None]
  - Somnolence [None]
  - Irritability [None]
  - Gait disturbance [None]
  - Diabetes mellitus [None]

NARRATIVE: CASE EVENT DATE: 20240711
